FAERS Safety Report 10104027 (Version 2)
Quarter: 2014Q2

REPORT INFORMATION
  Report Type: Spontaneous
  Country: GB (occurrence: GB)
  Receive Date: 20140424
  Receipt Date: 20140506
  Transmission Date: 20141212
  Serious: Yes (Death)
  Sender: FDA-Public Use
  Company Number: GB-ACTAVISPR-2014-08062

PATIENT
  Age: 51 Year
  Sex: Male

DRUGS (3)
  1. PREDNISOLONE [Suspect]
     Indication: PRODUCT USED FOR UNKNOWN INDICATION
     Dosage: 5 MG, UNKNOWN; 28 TABLET
     Route: 048
  2. ADOPORT [Suspect]
     Indication: PRODUCT USED FOR UNKNOWN INDICATION
     Dosage: 1 MG CAPSULE (100) UNKNOWN, ALSO TOOK AND 1 MG CAPSULE 0.5 MG (50)
     Route: 048
  3. MYCOPHENOLATE MOFETIL ACCORD [Suspect]
     Indication: PRODUCT USED FOR UNKNOWN INDICATION
     Dosage: 500 MG, UNKNOWN; 50 TABLETS
     Route: 048

REACTIONS (1)
  - Death [Fatal]
